FAERS Safety Report 14944009 (Version 1)
Quarter: 2018Q2

REPORT INFORMATION
  Report Type: Spontaneous
  Country: US (occurrence: US)
  Receive Date: 20180528
  Receipt Date: 20180528
  Transmission Date: 20180711
  Serious: No
  Sender: FDA-Public Use
  Company Number: US-GLAXOSMITHKLINE-US2018091078

PATIENT
  Age: 68 Year
  Sex: Female

DRUGS (1)
  1. NICORETTE [Suspect]
     Active Substance: NICOTINE
     Indication: PRODUCT USED FOR UNKNOWN INDICATION
     Dosage: 4 MG, UNK

REACTIONS (4)
  - Blood blister [Recovered/Resolved]
  - Product package associated injury [Recovered/Resolved]
  - Skin fissures [Recovered/Resolved]
  - Skin reaction [Recovered/Resolved]
